FAERS Safety Report 20951932 (Version 1)
Quarter: 2022Q2

REPORT INFORMATION
  Report Type: Spontaneous
  Country: US (occurrence: None)
  Receive Date: 20220613
  Receipt Date: 20220613
  Transmission Date: 20220721
  Serious: No
  Sender: FDA-Public Use
  Company Number: None

PATIENT
  Sex: Female

DRUGS (2)
  1. EVEROLIMUS [Suspect]
     Active Substance: EVEROLIMUS
     Indication: Breast cancer
     Dosage: 7.5MG DAILY ORAL?
     Route: 048
     Dates: start: 202107
  2. EXEMESTANE [Concomitant]
     Active Substance: EXEMESTANE

REACTIONS (4)
  - Conjunctivitis [None]
  - Candida infection [None]
  - Pharyngeal swelling [None]
  - Swollen tongue [None]
